FAERS Safety Report 21994285 (Version 1)
Quarter: 2023Q1

REPORT INFORMATION
  Report Type: Spontaneous
  Country: NO (occurrence: NO)
  Receive Date: 20230215
  Receipt Date: 20230215
  Transmission Date: 20230418
  Serious: Yes (Other)
  Sender: FDA-Public Use
  Company Number: NO-SA-SAC20230213001649

PATIENT
  Age: 56 Year

DRUGS (4)
  1. ARAVA [Suspect]
     Active Substance: LEFLUNOMIDE
     Indication: Mixed connective tissue disease
     Dosage: UNK
     Dates: start: 20200703, end: 20200719
  2. ARAVA [Suspect]
     Active Substance: LEFLUNOMIDE
     Indication: Rheumatoid arthritis
  3. ARAVA [Suspect]
     Active Substance: LEFLUNOMIDE
     Indication: Chronic cutaneous lupus erythematosus
  4. ARAVA [Suspect]
     Active Substance: LEFLUNOMIDE
     Indication: Lichen sclerosus

REACTIONS (20)
  - Stevens-Johnson syndrome [Unknown]
  - Eye inflammation [Unknown]
  - Eye pain [Unknown]
  - Dry eye [Unknown]
  - Mucosal disorder [Unknown]
  - Dry mouth [Unknown]
  - Dry throat [Unknown]
  - Wound [Unknown]
  - Genital pain [Unknown]
  - Sexual dysfunction [Unknown]
  - Onychoclasis [Unknown]
  - Nail disorder [Unknown]
  - Onychalgia [Unknown]
  - Fatigue [Unknown]
  - Exercise tolerance decreased [Unknown]
  - Condition aggravated [Unknown]
  - Quality of life decreased [Unknown]
  - Confusional state [Unknown]
  - Lethargy [Unknown]
  - Lip exfoliation [Unknown]

NARRATIVE: CASE EVENT DATE: 20200719
